FAERS Safety Report 12130456 (Version 2)
Quarter: 2016Q1

REPORT INFORMATION
  Report Type: Spontaneous
  Country: IN (occurrence: IN)
  Receive Date: 20160301
  Receipt Date: 20160310
  Transmission Date: 20160526
  Serious: Yes (Death)
  Sender: FDA-Public Use
  Company Number: IN-GE HEALTHCARE MEDICAL DIAGNOSTICS-OMPQ-PR-1602S-0221

PATIENT
  Age: 75 Year
  Sex: Male

DRUGS (6)
  1. OMNIPAQUE [Suspect]
     Active Substance: IOHEXOL
     Indication: DIAGNOSTIC PROCEDURE
  2. LASILACTONE [Concomitant]
     Active Substance: FUROSEMIDE\SPIRONOLACTONE
  3. OMNIPAQUE [Suspect]
     Active Substance: IOHEXOL
     Indication: THROMBOSIS
     Route: 042
     Dates: start: 20160222, end: 20160222
  4. MAXIFLO INHALER [Concomitant]
  5. LEVOLIN [Concomitant]
  6. DIAPHYLLIN [Concomitant]
     Active Substance: AMINOPHYLLINE

REACTIONS (3)
  - Cardiac failure [Fatal]
  - Chills [Not Recovered/Not Resolved]
  - Pyrexia [Not Recovered/Not Resolved]

NARRATIVE: CASE EVENT DATE: 20160222
